FAERS Safety Report 14750463 (Version 4)
Quarter: 2018Q4

REPORT INFORMATION
  Report Type: Report from Study
  Country: CA (occurrence: CA)
  Receive Date: 20180412
  Receipt Date: 20181128
  Transmission Date: 20190204
  Serious: Yes (Other)
  Sender: FDA-Public Use
  Company Number: CA-BRISTOL-MYERS SQUIBB COMPANY-BMS-2018-022619

PATIENT
  Age: 53 Year
  Sex: Female

DRUGS (1)
  1. ABATACEPT [Suspect]
     Active Substance: ABATACEPT
     Indication: RHEUMATOID ARTHRITIS
     Dosage: 125 MG, QWK
     Route: 058
     Dates: start: 20151215

REACTIONS (6)
  - Carpal tunnel syndrome [Unknown]
  - Onychomycosis [Unknown]
  - Pain in extremity [Unknown]
  - Nephrolithiasis [Unknown]
  - Condition aggravated [Unknown]
  - Tooth disorder [Unknown]

NARRATIVE: CASE EVENT DATE: 20180201
